FAERS Safety Report 4874090-6 (Version None)
Quarter: 2005Q4

REPORT INFORMATION
  Report Type: 
  Country: None (occurrence: None)
  Receive Date: 20051201
  Receipt Date: 20050803
  Transmission Date: 20060501
  Serious: No
  Sender: FDA-Public Use
  Company Number: 2005PV000939

PATIENT
  Age: 55 Year
  Sex: Female
  Weight: 117.9352 kg

DRUGS (16)
  1. BYETTA [Suspect]
     Indication: DIABETES MELLITUS NON-INSULIN-DEPENDENT
     Dosage: SEE IMAGE
     Route: 058
     Dates: start: 20050702, end: 20050801
  2. BYETTA [Suspect]
     Indication: DIABETES MELLITUS NON-INSULIN-DEPENDENT
     Dosage: SEE IMAGE
     Route: 058
     Dates: start: 20050802
  3. METFORMIN HYDROCHLORIDE [Concomitant]
  4. AVANDIA [Concomitant]
  5. CYMBALTA [Concomitant]
  6. GLIPIZIDE [Concomitant]
  7. ESTRACE [Concomitant]
  8. PROTONIX [Concomitant]
  9. VITAMIN B COMPLEX CAP [Concomitant]
  10. SULINDAC [Concomitant]
  11. ALLOPURINOL [Concomitant]
  12. URACET [Concomitant]
  13. FIORECT [Concomitant]
  14. XANAX [Concomitant]
  15. FLONASE [Concomitant]
  16. ZYRTEC [Concomitant]

REACTIONS (4)
  - FATIGUE [None]
  - NAUSEA [None]
  - SENSATION OF HEAVINESS [None]
  - YAWNING [None]
